FAERS Safety Report 7631498-3 (Version None)
Quarter: 2011Q3

REPORT INFORMATION
  Report Type: 
  Country: None (occurrence: None)
  Receive Date: 20110725
  Receipt Date: 20110719
  Transmission Date: 20111222
  Serious: Yes (Other)
  Sender: FDA-Public Use
  Company Number: US-PFIZER INC-2011164797

PATIENT

DRUGS (2)
  1. MISOPROSTOL [Suspect]
     Dosage: 800 UG, UNK
     Route: 064
  2. METHOTREXATE [Suspect]
     Dosage: 100 MG, UNK
     Route: 064

REACTIONS (3)
  - DYSMORPHISM [None]
  - HYPOTONIA [None]
  - MATERNAL EXPOSURE DURING PREGNANCY [None]
